FAERS Safety Report 10810756 (Version 1)
Quarter: 2015Q1

REPORT INFORMATION
  Report Type: Spontaneous
  Country: DE (occurrence: None)
  Receive Date: 20150212
  Receipt Date: 20150212
  Transmission Date: 20150721
  Serious: Yes (Death, Hospitalization, Other)
  Sender: FDA-Public Use
  Company Number: 20150262

PATIENT
  Age: 13 Year
  Sex: Male

DRUGS (2)
  1. DOXORUBICIN (DOXORUBICIN) [Suspect]
     Active Substance: DOXORUBICIN
  2. METHOTREXATE [Suspect]
     Active Substance: METHOTREXATE
     Indication: T-CELL TYPE ACUTE LEUKAEMIA

REACTIONS (14)
  - Disease recurrence [None]
  - Fatigue [None]
  - Renal failure [None]
  - Disseminated intravascular coagulation [None]
  - Respiratory failure [None]
  - Cerebral haemorrhage [None]
  - Neutropenia [None]
  - Multi-organ failure [None]
  - Herpes simplex [None]
  - Electrolyte imbalance [None]
  - Hepatic failure [None]
  - Epidermolysis [None]
  - Hypotension [None]
  - Mucosal inflammation [None]
